FAERS Safety Report 9351224 (Version 1)
Quarter: 2013Q2

REPORT INFORMATION
  Report Type: Spontaneous
  Country: US (occurrence: US)
  Receive Date: 20130617
  Receipt Date: 20130617
  Transmission Date: 20140414
  Serious: Yes (Other)
  Sender: FDA-Public Use
  Company Number: US-PFIZER INC-2013180185

PATIENT
  Sex: Male

DRUGS (1)
  1. QUILLIVANT XR [Suspect]
     Indication: ABNORMAL BEHAVIOUR
     Dosage: 5 ML, 1X/DAY
     Dates: start: 20130520, end: 2013

REACTIONS (1)
  - Dystonia [Unknown]
